FAERS Safety Report 17432009 (Version 1)
Quarter: 2020Q1

REPORT INFORMATION
  Report Type: Report from Study
  Country: US (occurrence: US)
  Receive Date: 20200218
  Receipt Date: 20200218
  Transmission Date: 20200409
  Serious: Yes (Other)
  Sender: FDA-Public Use
  Company Number: US-PFIZER INC-2020065999

PATIENT
  Age: 33 Year
  Sex: Female

DRUGS (5)
  1. VIDEX [Suspect]
     Active Substance: DIDANOSINE
     Dosage: UNK (NUMBER OF COURSES:1)
  2. ZERIT [Suspect]
     Active Substance: STAVUDINE
     Dosage: UNK (NUMBER OF COURSES: 1)
  3. AGENERASE [Suspect]
     Active Substance: AMPRENAVIR
     Dosage: UNK (NUMBER OF COURSES: 1)
  4. NORVIR [Suspect]
     Active Substance: RITONAVIR
     Dosage: UNK
  5. VIRACEPT [Suspect]
     Active Substance: NELFINAVIR MESYLATE
     Dosage: UNK (NUMBER OF COURSES:1)

REACTIONS (1)
  - Abortion spontaneous [Unknown]
